FAERS Safety Report 6328406-4 (Version None)
Quarter: 2009Q3

REPORT INFORMATION
  Report Type: 
  Country: None (occurrence: None)
  Receive Date: 20090825
  Receipt Date: 20090327
  Transmission Date: 20100115
  Serious: No
  Sender: FDA-Public Use
  Company Number: US-ABBOTT-09P-163-0565165-00

PATIENT
  Sex: Female
  Weight: 94.432 kg

DRUGS (2)
  1. SYNTHROID [Suspect]
     Indication: HYPOTHYROIDISM
     Route: 048
     Dates: start: 19630101, end: 19930101
  2. SYNTHROID [Suspect]
     Dates: start: 19980101, end: 20080101

REACTIONS (3)
  - DIARRHOEA [None]
  - FLUSHING [None]
  - FREQUENT BOWEL MOVEMENTS [None]
